FAERS Safety Report 21001006 (Version 1)
Quarter: 2022Q2

REPORT INFORMATION
  Report Type: Spontaneous
  Country: LB (occurrence: LB)
  Receive Date: 20220624
  Receipt Date: 20220624
  Transmission Date: 20220721
  Serious: Yes (Hospitalization, Other)
  Sender: FDA-Public Use
  Company Number: LB-BoehringerIngelheim-2022-BI-177100

PATIENT
  Age: 82 Year
  Sex: Male

DRUGS (2)
  1. DABIGATRAN [Suspect]
     Active Substance: DABIGATRAN
     Indication: Atrial fibrillation
  2. BISOPROLOL [Concomitant]
     Active Substance: BISOPROLOL
     Indication: Atrial fibrillation

REACTIONS (3)
  - Loss of consciousness [Unknown]
  - Cerebral haemorrhage [Recovering/Resolving]
  - Cerebral mass effect [Recovering/Resolving]
